FAERS Safety Report 5785984-1 (Version None)
Quarter: 2008Q2

REPORT INFORMATION
  Report Type: 
  Country: None (occurrence: None)
  Receive Date: 20080624
  Receipt Date: 20080616
  Transmission Date: 20081010
  Serious: Yes (Other)
  Sender: FDA-Public Use
  Company Number: PHEH2008US00539

PATIENT
  Age: 60 Year
  Sex: Male

DRUGS (9)
  1. ZOMETA [Suspect]
     Indication: MULTIPLE MYELOMA
     Dosage: 4MG, Q3MO
     Dates: start: 20011201, end: 20071001
  2. LIPITOR [Concomitant]
     Indication: BLOOD CHOLESTEROL INCREASED
     Dosage: 10 MG, QD
  3. PROTONIX [Concomitant]
  4. ASPIRIN [Concomitant]
  5. EPOGEN [Concomitant]
  6. VITAMIN CAP [Concomitant]
  7. LEXAPRO [Concomitant]
     Dosage: 20 MG, QD
  8. BENICAR [Concomitant]
     Indication: HYPERTENSION
     Dosage: 5 MG, QD
  9. PLAVIX [Concomitant]
     Dosage: 75 MG, QD

REACTIONS (3)
  - HIP ARTHROPLASTY [None]
  - MUSCULOSKELETAL DISCOMFORT [None]
  - OSTEONECROSIS [None]
